FAERS Safety Report 5164880-7 (Version None)
Quarter: 2006Q4

REPORT INFORMATION
  Report Type: 
  Country: None (occurrence: None)
  Receive Date: 20061124
  Receipt Date: 20061109
  Transmission Date: 20070319
  Serious: No
  Sender: FDA-Public Use
  Company Number: TPA2006A02012

PATIENT
  Age: 57 Year
  Sex: Female
  Weight: 72.5755 kg

DRUGS (4)
  1. ROZEREM [Suspect]
     Indication: INSOMNIA
     Dosage: SEE IMAGE
     Route: 048
     Dates: start: 20061001
  2. ROZEREM [Suspect]
     Indication: INSOMNIA
     Dosage: SEE IMAGE
     Route: 048
     Dates: start: 20061103
  3. ASPIRIN [Concomitant]
  4. MULTIVITAMIN (ERGO-CALCIFEROL, ASCORBIC ACID, FOLIC ACID, THIAMINE HYD [Concomitant]

REACTIONS (5)
  - CONDITION AGGRAVATED [None]
  - HOT FLUSH [None]
  - SOMNOLENCE [None]
  - TREATMENT NONCOMPLIANCE [None]
  - WRONG TECHNIQUE IN DRUG USAGE PROCESS [None]
